FAERS Safety Report 7654087-3 (Version None)
Quarter: 2011Q3

REPORT INFORMATION
  Report Type: 
  Country: None (occurrence: None)
  Receive Date: 20110803
  Receipt Date: 20110725
  Transmission Date: 20111222
  Serious: Yes (Other)
  Sender: FDA-Public Use
  Company Number: PHFR2011GB02893

PATIENT
  Sex: Male

DRUGS (7)
  1. AMISULPRIDE SANDOZ [Suspect]
     Dosage: 600MG
  2. LANSOPRAZOLE [Concomitant]
     Dosage: 30 MG, UNK
     Route: 048
  3. HYOSCINE [Concomitant]
     Route: 061
  4. PROPRANOLOL [Concomitant]
     Dosage: 20 MG, UNK
     Route: 048
  5. AMITRIPTYLINE HCL [Concomitant]
     Dosage: 25 MG, UNK
     Route: 048
  6. FOLIC ACID [Concomitant]
     Dosage: 5 MG, UNK
     Route: 048
  7. CLOZAPINE [Suspect]
     Dosage: 400 MG/DAY
     Route: 048
     Dates: start: 20070918

REACTIONS (3)
  - PLATELET COUNT DECREASED [None]
  - HAEMOGLOBIN DECREASED [None]
  - SICKLE CELL TRAIT [None]
